FAERS Safety Report 6092820-5 (Version None)
Quarter: 2009Q1

REPORT INFORMATION
  Report Type: 
  Country: None (occurrence: None)
  Receive Date: 20090225
  Receipt Date: 20090213
  Transmission Date: 20090719
  Serious: Yes (Death, Hospitalization, Other)
  Sender: FDA-Public Use
  Company Number: JP-ELI_LILLY_AND_COMPANY-JP200810005740

PATIENT
  Sex: Male
  Weight: 58 kg

DRUGS (11)
  1. ZYPREXA [Suspect]
     Indication: HALLUCINATION
     Dosage: UNK, UNK
     Route: 048
     Dates: start: 20061201, end: 20061201
  2. ZYPREXA [Suspect]
     Dosage: 10 MG, DAILY (1/D)
     Route: 048
     Dates: start: 20061219, end: 20061224
  3. ZYPREXA [Suspect]
     Dosage: 15 MG, DAILY (1/D)
     Route: 048
     Dates: start: 20061225, end: 20070104
  4. ZYPREXA [Suspect]
     Dosage: 2.5 MG, DAILY (1/D)
     Route: 048
     Dates: start: 20070105, end: 20070108
  5. ZYPREXA [Suspect]
     Dosage: 2.5 MG, DAILY (1/D)
     Route: 048
     Dates: start: 20070113, end: 20070119
  6. ZYPREXA [Suspect]
     Dosage: 5 MG, DAILY (1/D)
     Route: 048
     Dates: start: 20070120, end: 20070122
  7. RISPERDAL [Concomitant]
     Indication: HALLUCINATION
     Dosage: 1 MG, 2/D
     Route: 048
     Dates: start: 20061214, end: 20061214
  8. RISPERDAL [Concomitant]
     Dosage: 1 MG, 3/D
     Route: 048
     Dates: start: 20061215, end: 20061217
  9. MAGMITT [Concomitant]
     Indication: CONSTIPATION
     Dosage: 1980 MG, DAILY (1/D)
     Route: 048
     Dates: end: 20070123
  10. POLLAKISU [Concomitant]
     Indication: BENIGN PROSTATIC HYPERPLASIA
     Dosage: 9 MG, DAILY (1/D)
     Route: 048
     Dates: end: 20070123
  11. THEO-DUR [Concomitant]
     Indication: ASTHMA
     Dosage: 100 MG, DAILY (1/D)
     Route: 048
     Dates: end: 20070123

REACTIONS (5)
  - DISSEMINATED INTRAVASCULAR COAGULATION [None]
  - GASTROENTERITIS [None]
  - NEUROLEPTIC MALIGNANT SYNDROME [None]
  - PNEUMONIA [None]
  - SEPSIS [None]
